FAERS Safety Report 5167207-X (Version None)
Quarter: 2006Q4

REPORT INFORMATION
  Report Type: 
  Country: None (occurrence: None)
  Receive Date: 20061130
  Receipt Date: 20061120
  Transmission Date: 20070319
  Serious: Yes (Life-Threatening)
  Sender: FDA-Public Use
  Company Number: E2090-00125-SPO-JP

PATIENT
  Age: 33 Year
  Sex: Female

DRUGS (9)
  1. ZONEGRAN [Suspect]
     Indication: CONVULSION PROPHYLAXIS
     Dosage: 100 MG, ORAL
     Route: 048
     Dates: start: 20060820, end: 20060825
  2. ROCEPHIN [Concomitant]
  3. SOLU-MEDROL [Concomitant]
  4. HEPARIN [Concomitant]
  5. GLYCEOL (GLYCEOL) [Concomitant]
  6. CEFAZOLIN SODIUM [Concomitant]
  7. GENTACIN (GENTAMICIN SULFATE) [Concomitant]
  8. LASIX [Concomitant]
  9. SOLDACTONE (POTASSIUM CANRENOATE) [Concomitant]

REACTIONS (1)
  - NEUTROPENIA [None]
